FAERS Safety Report 4799654-X (Version None)
Quarter: 2005Q4

REPORT INFORMATION
  Report Type: 
  Country: None (occurrence: None)
  Receive Date: 20051013
  Receipt Date: 20050927
  Transmission Date: 20060501
  Serious: Yes (Hospitalization, Disabling)
  Sender: FDA-Public Use
  Company Number: 2005135429

PATIENT
  Age: 62 Year
  Sex: Male
  Weight: 110 kg

DRUGS (13)
  1. LIPITOR [Suspect]
     Indication: BLOOD CHOLESTEROL
     Dosage: 40 MG (40 MG, 1 IN 1 D), ORAL
     Route: 048
     Dates: start: 20040901
  2. LIPITOR [Suspect]
     Indication: CEREBROVASCULAR ACCIDENT
     Dosage: 40 MG (40 MG, 1 IN 1 D), ORAL
     Route: 048
     Dates: start: 20040901
  3. COLGOUT (COLCHICINE) [Concomitant]
  4. VERACAPS SR (VERAPAMIL HYDROCHLORIDE) [Concomitant]
  5. MICARDIS HCT [Concomitant]
  6. LOSEC (OMEPRAZOLE) [Concomitant]
  7. DIABEX (METFORMIN HYDROCHLORIDE) [Concomitant]
  8. NOVOMIX (INSULIN ASPART) [Concomitant]
  9. ASPIRIN [Concomitant]
  10. PLAVIX [Concomitant]
  11. OMEGA 3 (FISH OIL) [Concomitant]
  12. SAW PALMETTO (SAW PALMETTO) [Concomitant]
  13. GINGKOMIN (GINKGO BILOBA) [Concomitant]

REACTIONS (7)
  - ACTIVITIES OF DAILY LIVING IMPAIRED [None]
  - AMNESIA [None]
  - DIZZINESS [None]
  - FATIGUE [None]
  - HYPOTENSION [None]
  - LOSS OF CONSCIOUSNESS [None]
  - VISION BLURRED [None]
